FAERS Safety Report 6997031-4 (Version None)
Quarter: 2010Q3

REPORT INFORMATION
  Report Type: 
  Country: None (occurrence: None)
  Receive Date: 20100918
  Receipt Date: 20100218
  Transmission Date: 20110219
  Serious: No
  Sender: FDA-Public Use
  Company Number: US-WYE-H10941309

PATIENT
  Sex: Female
  Weight: 72.64 kg

DRUGS (3)
  1. LYBREL [Suspect]
     Indication: ORAL CONTRACEPTION
     Route: 048
     Dates: start: 20080401
  2. LYBREL [Suspect]
     Indication: UTERINE LEIOMYOMA
  3. VITAMINS [Concomitant]

REACTIONS (4)
  - CARPAL TUNNEL SYNDROME [None]
  - JOINT STIFFNESS [None]
  - OEDEMA PERIPHERAL [None]
  - SKIN TIGHTNESS [None]
